FAERS Safety Report 18545717 (Version 1)
Quarter: 2020Q4

REPORT INFORMATION
  Report Type: Spontaneous
  Country: US (occurrence: US)
  Receive Date: 20201125
  Receipt Date: 20201125
  Transmission Date: 20210114
  Serious: No
  Sender: FDA-Public Use
  Company Number: None

PATIENT
  Age: 67 Year
  Sex: Male
  Weight: 93.83 kg

DRUGS (21)
  1. LIDOCAINE. [Concomitant]
     Active Substance: LIDOCAINE
  2. ROPINIROLE. [Concomitant]
     Active Substance: ROPINIROLE
  3. VITAMIN D3 [Concomitant]
     Active Substance: CHOLECALCIFEROL
  4. ABIRATERONE. [Suspect]
     Active Substance: ABIRATERONE ACETATE
     Indication: PROSTATE CANCER
     Route: 048
     Dates: start: 20200313, end: 20201125
  5. AMLODIPINE [Concomitant]
     Active Substance: AMLODIPINE BESYLATE
  6. GABAPENTIN. [Concomitant]
     Active Substance: GABAPENTIN
  7. INSPRA [Concomitant]
     Active Substance: EPLERENONE
  8. METOPROLOL. [Concomitant]
     Active Substance: METOPROLOL
  9. ONDANSETRON [Concomitant]
     Active Substance: ONDANSETRON
  10. AMITRIPTYLLINE [Concomitant]
     Active Substance: AMITRIPTYLINE
  11. ASPIRIN. [Concomitant]
     Active Substance: ASPIRIN
  12. BACID [Concomitant]
     Active Substance: LACTOBACILLUS ACIDOPHILUS
  13. NEXIUM [Concomitant]
     Active Substance: ESOMEPRAZOLE MAGNESIUM
  14. TUMS [Concomitant]
     Active Substance: CALCIUM CARBONATE
  15. XGEVA [Concomitant]
     Active Substance: DENOSUMAB
  16. PREDNISONE. [Concomitant]
     Active Substance: PREDNISONE
  17. POTASSIUM [Concomitant]
     Active Substance: POTASSIUM
  18. CLONAZEPAM. [Concomitant]
     Active Substance: CLONAZEPAM
  19. ELIGARD [Concomitant]
     Active Substance: LEUPROLIDE ACETATE
  20. LOSARTAN-HCTZ [Concomitant]
     Active Substance: HYDROCHLOROTHIAZIDE\LOSARTAN
  21. METFORMIN [Concomitant]
     Active Substance: METFORMIN HYDROCHLORIDE

REACTIONS (1)
  - Prostatic specific antigen increased [None]

NARRATIVE: CASE EVENT DATE: 20201125
